FAERS Safety Report 10086918 (Version 1)
Quarter: 2014Q2

REPORT INFORMATION
  Report Type: Spontaneous
  Country: JP (occurrence: JP)
  Receive Date: 20140418
  Receipt Date: 20140418
  Transmission Date: 20141212
  Serious: Yes (Other)
  Sender: FDA-Public Use
  Company Number: PHHY2014JP046663

PATIENT
  Sex: 0

DRUGS (1)
  1. CLOZARIL [Suspect]
     Dosage: 600 MG, UNK
     Route: 048

REACTIONS (9)
  - Angina pectoris [Unknown]
  - Hallucination, auditory [Unknown]
  - Confusional state [Unknown]
  - Anxiety [Unknown]
  - Communication disorder [Unknown]
  - Memory impairment [Unknown]
  - Pyrexia [Unknown]
  - Constipation [Unknown]
  - Salivary hypersecretion [Unknown]
